FAERS Safety Report 5995461-0 (Version None)
Quarter: 2008Q4

REPORT INFORMATION
  Report Type: 
  Country: None (occurrence: None)
  Receive Date: 20081212
  Receipt Date: 20080930
  Transmission Date: 20090506
  Serious: No
  Sender: FDA-Public Use
  Company Number: US-ABBOTT-08P-163-0479012-00

PATIENT
  Sex: Female
  Weight: 83.99 kg

DRUGS (10)
  1. HUMIRA [Suspect]
     Indication: PSORIATIC ARTHROPATHY
     Dates: start: 20070601, end: 20080917
  2. HUMIRA [Suspect]
     Indication: ANKYLOSING SPONDYLITIS
     Dosage: PEN
     Dates: start: 20080917
  3. LEVOTHYROXINE SODIUM [Concomitant]
     Indication: DRUG USE FOR UNKNOWN INDICATION
  4. BLOOD PRESSURE MEDICATION [Concomitant]
     Indication: DRUG USE FOR UNKNOWN INDICATION
  5. PAIN MEDICATION [Concomitant]
     Indication: DRUG USE FOR UNKNOWN INDICATION
  6. LEVOTHYROXINE SODIUM [Concomitant]
     Indication: AUTOIMMUNE THYROIDITIS
     Route: 048
  7. METOPROLOL TARTRATE [Concomitant]
     Indication: BLOOD PRESSURE
     Route: 048
     Dates: start: 19920101
  8. OXYCODONE HCL [Concomitant]
     Indication: PAIN IN EXTREMITY
     Dosage: 1TABLET Q 4 HOURS AS NEEDED
     Route: 048
     Dates: start: 19920101
  9. FLOROXYL [Concomitant]
     Indication: ORAL CANDIDIASIS
     Route: 048
     Dates: start: 20080916
  10. ZYLET [Concomitant]
     Indication: INFLAMMATION
     Route: 031

REACTIONS (9)
  - ADVERSE REACTION [None]
  - BLOOD PRESSURE INCREASED [None]
  - FIBROMA [None]
  - HYPERHIDROSIS [None]
  - INFLUENZA LIKE ILLNESS [None]
  - OPEN WOUND [None]
  - ORAL CANDIDIASIS [None]
  - PSORIATIC ARTHROPATHY [None]
  - SKIN TIGHTNESS [None]
